FAERS Safety Report 13375278 (Version 2)
Quarter: 2017Q2

REPORT INFORMATION
  Report Type: Report from Study
  Country: US (occurrence: US)
  Receive Date: 20170327
  Receipt Date: 20170510
  Transmission Date: 20170830
  Serious: Yes (Other)
  Sender: FDA-Public Use
  Company Number: US-ACADIA PHARMACEUTICALS INC.-ACA-2017-002689

PATIENT
  Age: 67 Year
  Sex: Female
  Weight: 68.27 kg

DRUGS (3)
  1. CARBIDOPA/LEVODOPA [Concomitant]
     Active Substance: CARBIDOPA\LEVODOPA
     Indication: PRODUCT USED FOR UNKNOWN INDICATION
  2. XANAX [Concomitant]
     Active Substance: ALPRAZOLAM
     Indication: PRODUCT USED FOR UNKNOWN INDICATION
  3. NUPLAZID [Suspect]
     Active Substance: PIMAVANSERIN TARTRATE
     Indication: HALLUCINATION
     Dosage: 17 MG, QD
     Route: 048
     Dates: start: 201703

REACTIONS (11)
  - Palpitations [Unknown]
  - Fall [Unknown]
  - Tremor [Unknown]
  - Constipation [Unknown]
  - Anxiety [Recovered/Resolved]
  - Screaming [Unknown]
  - Pain in jaw [Not Recovered/Not Resolved]
  - Flight of ideas [Unknown]
  - Hallucination [Recovering/Resolving]
  - Loss of consciousness [Unknown]
  - Dysphonia [Unknown]

NARRATIVE: CASE EVENT DATE: 2017
